FAERS Safety Report 10599294 (Version 4)
Quarter: 2015Q1

REPORT INFORMATION
  Report Type: Spontaneous
  Country: US (occurrence: US)
  Receive Date: 20141121
  Receipt Date: 20150212
  Transmission Date: 20150720
  Serious: No
  Sender: FDA-Public Use
  Company Number: US-GLAXOSMITHKLINE-A1088463A

PATIENT

DRUGS (5)
  1. ADVAIR DISKUS [Suspect]
     Active Substance: FLUTICASONE PROPIONATE\SALMETEROL XINAFOATE
     Indication: ASTHMA
     Dosage: 250/50
     Dates: start: 201305
  2. FEXOFENADINE [Concomitant]
     Active Substance: FEXOFENADINE\FEXOFENADINE HYDROCHLORIDE
  3. NEBULIZED ALBUTEROL [Concomitant]
  4. VENTOLIN HFA [Concomitant]
     Active Substance: ALBUTEROL SULFATE
  5. CITALOPRAM [Concomitant]
     Active Substance: CITALOPRAM HYDROBROMIDE

REACTIONS (6)
  - Panic reaction [Unknown]
  - Therapeutic response unexpected [Unknown]
  - Product quality issue [Unknown]
  - Asthma [Recovered/Resolved]
  - Inhalation therapy [Unknown]
  - Underdose [Unknown]

NARRATIVE: CASE EVENT DATE: 20140901
